FAERS Safety Report 12807798 (Version 1)
Quarter: 2016Q4

REPORT INFORMATION
  Report Type: Spontaneous
  Country: US (occurrence: US)
  Receive Date: 20161004
  Receipt Date: 20161004
  Transmission Date: 20170207
  Serious: No
  Sender: FDA-Public Use
  Company Number: US-AMGEN-USASP2016076447

PATIENT
  Age: 91 Year
  Sex: Male
  Weight: 64 kg

DRUGS (15)
  1. RANITIDINE. [Concomitant]
     Active Substance: RANITIDINE
  2. CENTRUM SILVER                     /02363801/ [Concomitant]
     Active Substance: MINERALS\VITAMINS
  3. VITAMIN D                          /00107901/ [Concomitant]
     Active Substance: ERGOCALCIFEROL
  4. SIPULEUCEL-T [Concomitant]
     Active Substance: SIPULEUCEL-T
  5. ACETAMINOPHEN. [Concomitant]
     Active Substance: ACETAMINOPHEN
  6. BENADRYL [Concomitant]
     Active Substance: DIPHENHYDRAMINE HYDROCHLORIDE
  7. MIRAPEX [Concomitant]
     Active Substance: PRAMIPEXOLE DIHYDROCHLORIDE
  8. VITAMIN B12 [Concomitant]
     Active Substance: CYANOCOBALAMIN
  9. ASA [Concomitant]
     Active Substance: ASPIRIN
  10. OMEGA 3                            /01333901/ [Concomitant]
     Active Substance: FISH OIL\TOCOPHEROL
  11. ZINC [Concomitant]
     Active Substance: ZINC\ZINC CHLORIDE
  12. XTANDI [Suspect]
     Active Substance: ENZALUTAMIDE
     Indication: PROSTATE CANCER
     Dosage: 160 MG, QD
     Route: 048
     Dates: start: 201602
  13. XGEVA [Suspect]
     Active Substance: DENOSUMAB
     Indication: PRODUCT USED FOR UNKNOWN INDICATION
     Dosage: UNK
     Route: 065
  14. CALCIUM+MAGNESIUM [Concomitant]
  15. LYCOPENE [Concomitant]
     Active Substance: LYCOPENE

REACTIONS (8)
  - Restless legs syndrome [Not Recovered/Not Resolved]
  - Prostatic specific antigen increased [Not Recovered/Not Resolved]
  - Fatigue [Not Recovered/Not Resolved]
  - Hot flush [Recovering/Resolving]
  - Muscular weakness [Not Recovered/Not Resolved]
  - Insomnia [Unknown]
  - Hallucination [Unknown]
  - Sleep apnoea syndrome [Not Recovered/Not Resolved]
